FAERS Safety Report 4620651-9 (Version None)
Quarter: 2005Q1

REPORT INFORMATION
  Report Type: 
  Country: None (occurrence: None)
  Receive Date: 20050325
  Receipt Date: 20050307
  Transmission Date: 20050727
  Serious: Yes (Other)
  Sender: FDA-Public Use
  Company Number: A04200500246

PATIENT
  Sex: Female

DRUGS (3)
  1. QUENSYL          (HYDROXYCHLOROQUINE SULFATE) [Suspect]
     Indication: MIXED CONNECTIVE TISSUE DISEASE
     Dosage: 200MG  ORAL
     Route: 048
  2. METHYLPREDNISOLONE [Concomitant]
  3. BEXTRA [Concomitant]

REACTIONS (3)
  - ANAEMIA [None]
  - MENORRHAGIA [None]
  - RED BLOOD CELLS URINE POSITIVE [None]
